FAERS Safety Report 24378677 (Version 1)
Quarter: 2024Q3

REPORT INFORMATION
  Report Type: Spontaneous
  Country: CH (occurrence: CH)
  Receive Date: 20240930
  Receipt Date: 20240930
  Transmission Date: 20241017
  Serious: Yes (Other)
  Sender: ROCHE
  Company Number: CH-ROCHE-10000088979

PATIENT
  Age: 59 Year

DRUGS (4)
  1. RITUXIMAB [Suspect]
     Active Substance: RITUXIMAB
     Indication: Chronic lymphocytic leukaemia
     Route: 065
     Dates: start: 2010, end: 2011
  2. BENDAMUSTINE [Suspect]
     Active Substance: BENDAMUSTINE
     Indication: Chronic lymphocytic leukaemia
     Route: 065
     Dates: start: 2010, end: 2011
  3. OBINUTUZUMAB [Concomitant]
     Active Substance: OBINUTUZUMAB
  4. VENETOCLAX [Concomitant]
     Active Substance: VENETOCLAX

REACTIONS (1)
  - Chronic lymphocytic leukaemia recurrent [Unknown]

NARRATIVE: CASE EVENT DATE: 20240301
